FAERS Safety Report 8169366-3 (Version None)
Quarter: 2012Q1

REPORT INFORMATION
  Report Type: 
  Country: None (occurrence: None)
  Receive Date: 20120222
  Receipt Date: 20120203
  Transmission Date: 20120608
  Serious: Yes (Hospitalization)
  Sender: FDA-Public Use
  Company Number: 20120058

PATIENT
  Age: 90 Year
  Sex: Female

DRUGS (3)
  1. HYPERIUM (RILMENIDINE) [Concomitant]
  2. VENOFER [Suspect]
     Indication: ANAEMIA
     Dosage: 300 MG INTRAVENOUS DRIP
     Route: 041
     Dates: start: 20110921, end: 20110921
  3. ATACAND [Concomitant]

REACTIONS (2)
  - BICYTOPENIA [None]
  - THROMBOCYTOPENIA [None]
